FAERS Safety Report 7317968-6 (Version None)
Quarter: 2011Q1

REPORT INFORMATION
  Report Type: 
  Country: None (occurrence: None)
  Receive Date: 20110227
  Receipt Date: 20110215
  Transmission Date: 20110831
  Serious: Yes (Hospitalization)
  Sender: FDA-Public Use
  Company Number: US-BAYER-2011-015797

PATIENT
  Age: 28 Year
  Sex: Female

DRUGS (2)
  1. ALEVE (CAPLET) [Suspect]
     Indication: MIGRAINE
     Dosage: DAILY DOSE 10 DF
     Route: 048
     Dates: start: 20110215
  2. ASPIRIN [Concomitant]
     Dosage: DAILY DOSE 88 DF
     Route: 048
     Dates: start: 20110215

REACTIONS (4)
  - SOMNOLENCE [None]
  - MALAISE [None]
  - VOMITING [None]
  - PAIN [None]
